FAERS Safety Report 14420433 (Version 1)
Quarter: 2018Q1

REPORT INFORMATION
  Report Type: Spontaneous
  Country: US (occurrence: US)
  Receive Date: 20180122
  Receipt Date: 20180122
  Transmission Date: 20180509
  Serious: No
  Sender: FDA-Public Use
  Company Number: US-ROCHE-1947835

PATIENT
  Sex: Female
  Weight: 69.2 kg

DRUGS (1)
  1. RITUXAN [Suspect]
     Active Substance: RITUXIMAB
     Indication: AUTOIMMUNE HAEMOLYTIC ANAEMIA
     Dosage: FOR 4 WEEKS
     Route: 042
     Dates: start: 20170424, end: 20170515

REACTIONS (2)
  - No adverse event [Unknown]
  - Off label use [Unknown]
